FAERS Safety Report 7481574-3 (Version None)
Quarter: 2011Q2

REPORT INFORMATION
  Report Type: 
  Country: None (occurrence: None)
  Receive Date: 20110516
  Receipt Date: 20110512
  Transmission Date: 20111010
  Serious: Yes (Other)
  Sender: FDA-Public Use
  Company Number: A0927087A

PATIENT
  Age: 50 Year
  Sex: Female
  Weight: 85.9 kg

DRUGS (1)
  1. ALLI [Suspect]
     Indication: WEIGHT LOSS DIET
     Route: 048
     Dates: start: 20110201, end: 20110510

REACTIONS (12)
  - TREATMENT NONCOMPLIANCE [None]
  - SWELLING [None]
  - YELLOW SKIN [None]
  - WEIGHT INCREASED [None]
  - DIARRHOEA [None]
  - FLUID RETENTION [None]
  - PAIN [None]
  - ABDOMINAL PAIN [None]
  - SWELLING FACE [None]
  - DRUG INEFFECTIVE [None]
  - RECTAL DISCHARGE [None]
  - PRODUCT QUALITY ISSUE [None]
